FAERS Safety Report 15469720 (Version 1)
Quarter: 2018Q4

REPORT INFORMATION
  Report Type: Spontaneous
  Country: US (occurrence: US)
  Receive Date: 20181005
  Receipt Date: 20181005
  Transmission Date: 20190205
  Serious: Yes (Other)
  Sender: FDA-Public Use
  Company Number: US-PFIZER INC-2018402494

PATIENT
  Age: 85 Year
  Sex: Female

DRUGS (6)
  1. DELTASONE [Suspect]
     Active Substance: PREDNISONE
     Dosage: 5 MG, UNK [TWO AT A TIME (5 MG)]
  2. PREDNISONE. [Concomitant]
     Active Substance: PREDNISONE
     Indication: RHEUMATOID ARTHRITIS
     Dosage: UNK
  3. REMICADE [Suspect]
     Active Substance: INFLIXIMAB
     Dosage: UNK
  4. DELTASONE [Suspect]
     Active Substance: PREDNISONE
     Dosage: UNK
  5. XELJANZ XR [Suspect]
     Active Substance: TOFACITINIB CITRATE
     Indication: RHEUMATOID ARTHRITIS
     Dosage: 11 MG, 1X/DAY
     Route: 048
     Dates: start: 2017
  6. HUMIRA [Suspect]
     Active Substance: ADALIMUMAB
     Indication: RHEUMATOID ARTHRITIS
     Dosage: UNK
     Route: 058

REACTIONS (9)
  - Rheumatoid arthritis [Unknown]
  - Mobility decreased [Unknown]
  - Precancerous skin lesion [Unknown]
  - Skin mass [Unknown]
  - Hypoacusis [Unknown]
  - Bronchitis [Unknown]
  - Peripheral swelling [Unknown]
  - Osteoarthritis [Unknown]
  - Drug ineffective [Unknown]

NARRATIVE: CASE EVENT DATE: 2015
